FAERS Safety Report 7187661-1 (Version None)
Quarter: 2010Q4

REPORT INFORMATION
  Report Type: 
  Country: None (occurrence: None)
  Receive Date: 20101222
  Receipt Date: 20100702
  Transmission Date: 20110411
  Serious: No
  Sender: FDA-Public Use
  Company Number: US-AMGEN-TCS422045

PATIENT

DRUGS (2)
  1. ENBREL [Suspect]
     Indication: PSORIASIS
     Dosage: 50 MG, 2 TIMES/WK
  2. UNSPECIFIED MEDICATION [Concomitant]

REACTIONS (3)
  - DERMATITIS CONTACT [None]
  - SKIN TEST NEGATIVE [None]
  - SKIN TEST POSITIVE [None]
